FAERS Safety Report 22051898 (Version 1)
Quarter: 2023Q1

REPORT INFORMATION
  Report Type: Other
  Country: AU (occurrence: AU)
  Receive Date: 20230302
  Receipt Date: 20230302
  Transmission Date: 20230418
  Serious: Yes (Hospitalization)
  Sender: FDA-Public Use
  Company Number: AU-PAREXEL-2017AU017817

PATIENT
  Age: 73 Year
  Sex: Male
  Weight: 99 kg

DRUGS (9)
  1. ELIGARD [Suspect]
     Active Substance: LEUPROLIDE ACETATE
     Indication: Prostate cancer
     Dosage: UNK UNK, Q 3 MONTH
     Route: 058
     Dates: start: 20151019
  2. ELIGARD [Suspect]
     Active Substance: LEUPROLIDE ACETATE
     Dosage: UNK UNK, Q 3 MONTH
     Route: 058
     Dates: start: 20171117
  3. ENZALUTAMIDE [Suspect]
     Active Substance: ENZALUTAMIDE
     Indication: Prostate cancer
     Dosage: UNK, QD
     Route: 048
     Dates: start: 20151019
  4. ENZALUTAMIDE [Suspect]
     Active Substance: ENZALUTAMIDE
     Dosage: UNK, QD
     Route: 048
     Dates: start: 20171218
  5. CHOLESTYRAMINE [Concomitant]
     Active Substance: CHOLESTYRAMINE
     Indication: Cholecystectomy
     Dosage: 4 GRAM, PRN
     Route: 048
     Dates: start: 2012
  6. SIMETHICONE (DIMETHICONE) [Concomitant]
     Active Substance: DIMETHICONE
     Indication: Radiotherapy
     Dosage: 100 MG, PRN
     Route: 048
     Dates: start: 2015
  7. LOPERAMIDE [Concomitant]
     Active Substance: LOPERAMIDE
     Indication: Radiotherapy
     Dosage: 2 MG, PRN
     Route: 048
     Dates: start: 2015
  8. QUESTRAN-A [Concomitant]
     Indication: Diarrhoea
     Dosage: 4 GRAM, BID
     Route: 048
     Dates: start: 20170809
  9. CALTRATE [Concomitant]
     Active Substance: CALCIUM CARBONATE
     Indication: General physical condition
     Dosage: UNK UNK, QD
     Route: 048
     Dates: start: 20170603

REACTIONS (1)
  - Osteolysis [Recovered/Resolved]

NARRATIVE: CASE EVENT DATE: 20171206
